FAERS Safety Report 22208968 (Version 4)
Quarter: 2023Q2

REPORT INFORMATION
  Report Type: Report from Study
  Country: CA (occurrence: CA)
  Receive Date: 20230413
  Receipt Date: 20230608
  Transmission Date: 20230722
  Serious: Yes (Life-Threatening, Other)
  Sender: FDA-Public Use
  Company Number: CA-PFIZER INC-202300152235

PATIENT
  Age: 63 Year
  Sex: Female

DRUGS (13)
  1. HYDROMORPHONE HYDROCHLORIDE [Suspect]
     Active Substance: HYDROMORPHONE HYDROCHLORIDE
     Dosage: 1 MG
  2. HYDROMORPHONE HYDROCHLORIDE [Suspect]
     Active Substance: HYDROMORPHONE HYDROCHLORIDE
     Dosage: 3 MG (EVERY 12 HOURS)
  3. INSULIN NOS [Suspect]
     Active Substance: INSULIN NOS
     Dosage: UNK
     Route: 065
  4. INSULIN NOS [Suspect]
     Active Substance: INSULIN NOS
     Dosage: UNK
     Route: 065
  5. LANREOTIDE ACETATE [Suspect]
     Active Substance: LANREOTIDE ACETATE
     Indication: Neuroendocrine tumour
     Dosage: 120 MG (EVERY 4 WEEKS)
     Route: 058
  6. DOMPERIDONE [Concomitant]
     Active Substance: DOMPERIDONE
     Dosage: UNK
  7. INSULIN HUMAN [Concomitant]
     Active Substance: INSULIN HUMAN
     Dosage: (EVERY 12 HOURS)
  8. POLYETHYLENE GLYCOL 3350 [Concomitant]
     Active Substance: POLYETHYLENE GLYCOL 3350
     Dosage: UNK
  9. OMEPRAZOLE [Concomitant]
     Active Substance: OMEPRAZOLE
     Dosage: UNK
  10. ONDANSETRON [Concomitant]
     Active Substance: ONDANSETRON
     Dosage: UNK
  11. PANCRELIPASE [Concomitant]
     Active Substance: PANCRELIPASE
     Dosage: UNK
  12. SENOKOT [Concomitant]
     Active Substance: SENNOSIDES
     Dosage: UNK
  13. TRAMADOL [Concomitant]
     Active Substance: TRAMADOL

REACTIONS (46)
  - Drug ineffective [Not Recovered/Not Resolved]
  - Constipation [Not Recovered/Not Resolved]
  - Decreased appetite [Not Recovered/Not Resolved]
  - Depression [Not Recovered/Not Resolved]
  - Dry mouth [Not Recovered/Not Resolved]
  - Injection site pain [Not Recovered/Not Resolved]
  - Thirst [Not Recovered/Not Resolved]
  - Abdominal pain upper [Not Recovered/Not Resolved]
  - Adverse drug reaction [Not Recovered/Not Resolved]
  - Ageusia [Not Recovered/Not Resolved]
  - Anger [Not Recovered/Not Resolved]
  - Asthenia [Not Recovered/Not Resolved]
  - Asthenopia [Not Recovered/Not Resolved]
  - Blood glucose increased [Not Recovered/Not Resolved]
  - Fat tissue decreased [Not Recovered/Not Resolved]
  - Gastrointestinal pain [Not Recovered/Not Resolved]
  - Hypoaesthesia eye [Not Recovered/Not Resolved]
  - Nephrolithiasis [Not Recovered/Not Resolved]
  - Oral mucosal blistering [Not Recovered/Not Resolved]
  - Pain [Not Recovered/Not Resolved]
  - Psychiatric symptom [Not Recovered/Not Resolved]
  - Pyrexia [Not Recovered/Not Resolved]
  - Respiratory rate increased [Not Recovered/Not Resolved]
  - Suicidal ideation [Not Recovered/Not Resolved]
  - Tearfulness [Not Recovered/Not Resolved]
  - Tongue blistering [Not Recovered/Not Resolved]
  - Weight decreased [Not Recovered/Not Resolved]
  - Dizziness [Not Recovered/Not Resolved]
  - Fatigue [Not Recovered/Not Resolved]
  - Injection site mass [Not Recovered/Not Resolved]
  - Injection site pain [Not Recovered/Not Resolved]
  - Loss of personal independence in daily activities [Not Recovered/Not Resolved]
  - Abnormal behaviour [Not Recovered/Not Resolved]
  - Back pain [Not Recovered/Not Resolved]
  - Drug abuser [Not Recovered/Not Resolved]
  - Increased appetite [Not Recovered/Not Resolved]
  - Rest regimen [Not Recovered/Not Resolved]
  - Tumour pain [Not Recovered/Not Resolved]
  - Weight increased [Not Recovered/Not Resolved]
  - Brain neoplasm [Not Recovered/Not Resolved]
  - Diabetes mellitus inadequate control [Not Recovered/Not Resolved]
  - Headache [Not Recovered/Not Resolved]
  - Hypoaesthesia [Not Recovered/Not Resolved]
  - Muscular weakness [Not Recovered/Not Resolved]
  - Myopathy [Not Recovered/Not Resolved]
  - Nausea [Not Recovered/Not Resolved]
